FAERS Safety Report 8158128-9 (Version None)
Quarter: 2012Q1

REPORT INFORMATION
  Report Type: 
  Country: None (occurrence: None)
  Receive Date: 20120222
  Receipt Date: 20120215
  Transmission Date: 20120608
  Serious: Yes (Hospitalization)
  Sender: FDA-Public Use
  Company Number: PHHY2012NL013683

PATIENT
  Sex: Female
  Weight: 103 kg

DRUGS (2)
  1. KALIUMLOSARTAN SANDOZ [Suspect]
     Dosage: 50 MG, UNK
     Route: 048
     Dates: start: 20101110, end: 20101122
  2. LEVOTHYROXINE SODIUM [Concomitant]
     Dosage: 112 UG, UNK
     Dates: start: 20010101

REACTIONS (3)
  - ARRHYTHMIA [None]
  - MUSCLE SPASMS [None]
  - CARDIAC FAILURE [None]
